FAERS Safety Report 8542457-0 (Version None)
Quarter: 2012Q3

REPORT INFORMATION
  Report Type: 
  Country: None (occurrence: None)
  Receive Date: 20120726
  Receipt Date: 20111227
  Transmission Date: 20120928
  Serious: Yes (Other)
  Sender: FDA-Public Use
  Company Number: US-ASTRAZENECA-2008UW13144

PATIENT
  Age: 281 Month
  Sex: Male

DRUGS (9)
  1. LIQUID NITROGEN [Concomitant]
     Indication: SKIN PAPILLOMA
  2. LITHIUM CARBONATE [Concomitant]
     Dosage: 1800 IN DEVIDED DOSES
  3. SEROQUEL [Suspect]
     Indication: MOOD SWINGS
     Dosage: 25MG, 50MG, 100MG + 200MG
     Route: 048
     Dates: start: 20041215, end: 20061012
  4. SEROQUEL [Suspect]
     Indication: INSOMNIA
     Dosage: 25MG, 50MG, 100MG + 200MG
     Route: 048
     Dates: start: 20041215, end: 20061012
  5. SEROQUEL [Suspect]
     Dosage: 100 TO 200 AT HS
     Route: 048
     Dates: start: 20041215
  6. AMBIEN [Concomitant]
     Indication: INSOMNIA
  7. SEROQUEL [Suspect]
     Dosage: 100 TO 200 AT HS
     Route: 048
     Dates: start: 20041215
  8. SEROQUEL [Suspect]
     Indication: AGITATION
     Dosage: 25MG, 50MG, 100MG + 200MG
     Route: 048
     Dates: start: 20041215, end: 20061012
  9. SEROQUEL [Suspect]
     Dosage: 100 TO 200 AT HS
     Route: 048
     Dates: start: 20041215

REACTIONS (1)
  - TARDIVE DYSKINESIA [None]
